FAERS Safety Report 4512138-9 (Version None)
Quarter: 2004Q4

REPORT INFORMATION
  Report Type: 
  Country: None (occurrence: None)
  Receive Date: 20041129
  Receipt Date: 20040204
  Transmission Date: 20050328
  Serious: No
  Sender: FDA-Public Use
  Company Number: US-GLAXOSMITHKLINE-A0496668A

PATIENT

DRUGS (1)
  1. LANOXIN [Suspect]
     Indication: ILL-DEFINED DISORDER
     Dosage: .5MG TWICE PER DAY
     Route: 048

REACTIONS (3)
  - MEDICATION ERROR [None]
  - NAUSEA [None]
  - VISION BLURRED [None]
